FAERS Safety Report 18086948 (Version 1)
Quarter: 2020Q3

REPORT INFORMATION
  Report Type: Spontaneous
  Country: US (occurrence: US)
  Receive Date: 20200729
  Receipt Date: 20200729
  Transmission Date: 20201103
  Serious: No
  Sender: FDA-Public Use
  Company Number: None

PATIENT

DRUGS (2)
  1. BUSPIRONE [Suspect]
     Active Substance: BUSPIRONE HYDROCHLORIDE
  2. EZETIMIBE. [Suspect]
     Active Substance: EZETIMIBE

REACTIONS (5)
  - Wrong drug [None]
  - Product label confusion [None]
  - Product storage error [None]
  - Circumstance or information capable of leading to medication error [None]
  - Product packaging confusion [None]

NARRATIVE: CASE EVENT DATE: 20200729
